FAERS Safety Report 19615529 (Version 3)
Quarter: 2021Q3

REPORT INFORMATION
  Report Type: Report from Study
  Country: US (occurrence: US)
  Receive Date: 20210727
  Receipt Date: 20210923
  Transmission Date: 20211014
  Serious: Yes (Hospitalization)
  Sender: FDA-Public Use
  Company Number: US-TAKEDA-2021TUS020945

PATIENT
  Sex: Female

DRUGS (1)
  1. HUMAN NORMAL IMMUNOGLOBULIN; LIQUID [Suspect]
     Active Substance: HUMAN IMMUNOGLOBULIN G
     Indication: IMMUNODEFICIENCY COMMON VARIABLE
     Dosage: UNK
     Route: 042

REACTIONS (9)
  - Malaise [Unknown]
  - Cough [Unknown]
  - Sinusitis [Unknown]
  - Feeling abnormal [Unknown]
  - Renal pain [Unknown]
  - Illness [Unknown]
  - Nausea [Unknown]
  - Lung disorder [Unknown]
  - Infusion related reaction [Unknown]
